FAERS Safety Report 4314268-3 (Version None)
Quarter: 2004Q1

REPORT INFORMATION
  Report Type: 
  Country: None (occurrence: None)
  Receive Date: 20040308
  Receipt Date: 20040226
  Transmission Date: 20041129
  Serious: Yes (Hospitalization)
  Sender: FDA-Public Use
  Company Number: 2004UW03554

PATIENT
  Age: 53 Year
  Sex: Male

DRUGS (6)
  1. SEROQUEL [Suspect]
     Indication: BIPOLAR DISORDER
     Dosage: 600 MG DAILY PO
     Route: 048
     Dates: start: 20040129, end: 20040131
  2. SEROQUEL [Suspect]
     Indication: BIPOLAR DISORDER
     Dosage: 300 MG PO
     Route: 048
     Dates: start: 20030701
  3. SEROQUEL [Suspect]
     Indication: BIPOLAR DISORDER
     Dates: start: 20010201
  4. LITHOBID [Suspect]
     Dosage: 1200 MG PO
     Route: 048
     Dates: end: 20040201
  5. INDERAL [Suspect]
     Dosage: 40 MG PO
     Route: 048
     Dates: end: 20040201
  6. DOCUSATE [Suspect]
     Dosage: 100 MG PO
     Route: 048
     Dates: end: 20040201

REACTIONS (8)
  - ACTIVITIES OF DAILY LIVING IMPAIRED [None]
  - BLOOD CREATINE PHOSPHOKINASE INCREASED [None]
  - CONFUSIONAL STATE [None]
  - DRUG INTERACTION [None]
  - MUSCLE RIGIDITY [None]
  - MUSCULOSKELETAL STIFFNESS [None]
  - NEUROLEPTIC MALIGNANT SYNDROME [None]
  - PYREXIA [None]
